FAERS Safety Report 8818233 (Version 2)
Quarter: 2014Q3

REPORT INFORMATION
  Report Type: Spontaneous
  Country: US (occurrence: US)
  Receive Date: 20121001
  Receipt Date: 20140915
  Transmission Date: 20150326
  Serious: Yes (Hospitalization)
  Sender: FDA-Public Use
  Company Number: US-GLAXOSMITHKLINE-A0775149A

PATIENT
  Sex: Female
  Weight: 75 kg

DRUGS (1)
  1. AVANDIA [Suspect]
     Active Substance: ROSIGLITAZONE MALEATE
     Indication: TYPE 2 DIABETES MELLITUS
     Route: 048
     Dates: start: 200303, end: 200704

REACTIONS (3)
  - Myocardial infarction [Not Recovered/Not Resolved]
  - Gastrointestinal disorder [Unknown]
  - Cardiac failure congestive [Unknown]
